FAERS Safety Report 5341484-4 (Version None)
Quarter: 2007Q2

REPORT INFORMATION
  Report Type: 
  Country: None (occurrence: None)
  Receive Date: 20070530
  Receipt Date: 20070510
  Transmission Date: 20071010
  Serious: Yes (Death, Life-Threatening, Hospitalization, Disabling)
  Sender: FDA-Public Use
  Company Number: 2005EU000961

PATIENT
  Age: 44 Year
  Sex: Female

DRUGS (9)
  1. TACROLIMUS [Suspect]
     Indication: LIVER TRANSPLANT
     Dosage: 2.00 MG, UID/QD, ORAL
     Route: 048
     Dates: start: 20050420, end: 20050613
  2. DACLIZUMAB  (DACLIZUMAB ) [Suspect]
     Indication: LIVER TRANSPLANT
     Dosage: 100.00 MG, IV NOS
     Route: 042
     Dates: start: 20050415, end: 20050422
  3. MYCOPHENOLATE MOFETIL [Suspect]
     Indication: LIVER TRANSPLANT
     Dosage: SEE IMAGE
     Route: 042
     Dates: start: 20050415, end: 20050419
  4. MYCOPHENOLATE MOFETIL [Suspect]
     Indication: LIVER TRANSPLANT
     Dosage: SEE IMAGE
     Route: 042
     Dates: start: 20050420
  5. HYDROCORTISONE (HYDROCORTISONE) [Suspect]
     Indication: LIVER TRANSPLANT
     Dosage: 100.00 MG, UID/QD
     Dates: start: 20050415
  6. PREDNISONE TAB [Suspect]
     Indication: LIVER TRANSPLANT
     Dosage: 10.00 MG, UID/QD
     Dates: start: 20050418, end: 20050527
  7. PIPERACILLIN SODIUM AND TAZOBACTAM SODIUM [Concomitant]
  8. FLUCONAZOLE [Concomitant]
  9. CALCIUM CHLORIDE ^SPOFA^ (CALCIUM CHLORIDE  HEXAHYDRATE) [Concomitant]

REACTIONS (25)
  - ABDOMINAL SEPSIS [None]
  - ASCITES INFECTION [None]
  - ATRIAL FIBRILLATION [None]
  - BLOOD ALBUMIN DECREASED [None]
  - BLOOD CULTURE POSITIVE [None]
  - BLOOD PRODUCT TRANSFUSION DEPENDENT [None]
  - CELLULITIS [None]
  - DIARRHOEA [None]
  - ENTEROCOCCAL INFECTION [None]
  - ESCHERICHIA INFECTION [None]
  - GENERAL PHYSICAL HEALTH DETERIORATION [None]
  - HAEMATEMESIS [None]
  - HAEMATOMA [None]
  - HAEMOGLOBIN DECREASED [None]
  - LACERATION [None]
  - MELAENA [None]
  - MULTI-ORGAN FAILURE [None]
  - OEDEMA PERIPHERAL [None]
  - OXYGEN SATURATION DECREASED [None]
  - PLEURAL EFFUSION [None]
  - POST PROCEDURAL PNEUMONIA [None]
  - PULMONARY OEDEMA [None]
  - RENAL FAILURE [None]
  - SMALL INTESTINAL HAEMORRHAGE [None]
  - WOUND SECRETION [None]
